FAERS Safety Report 24020160 (Version 1)
Quarter: 2024Q2

REPORT INFORMATION
  Report Type: Report from Study
  Country: US (occurrence: US)
  Receive Date: 20240627
  Receipt Date: 20240627
  Transmission Date: 20240716
  Serious: Yes (Hospitalization)
  Sender: FDA-Public Use
  Company Number: US-SEATTLE GENETICS-2024SGN00573

PATIENT
  Age: 69 Year
  Sex: Female

DRUGS (2)
  1. TUKYSA [Suspect]
     Active Substance: TUCATINIB
     Dosage: 150 MG
  2. TUKYSA [Suspect]
     Active Substance: TUCATINIB
     Dosage: 50MG 1 TABLET TWICE A DAY, AND 150MG 1 TABLET TWICE A DAY

REACTIONS (2)
  - Hypersensitivity [Unknown]
  - Off label use [Unknown]

NARRATIVE: CASE EVENT DATE: 20231201
